FAERS Safety Report 21286688 (Version 1)
Quarter: 2022Q3

REPORT INFORMATION
  Report Type: Spontaneous
  Country: US (occurrence: US)
  Receive Date: 20220902
  Receipt Date: 20220902
  Transmission Date: 20221026
  Serious: Yes (Other)
  Sender: FDA-Public Use
  Company Number: US-SANOFI-01252381

PATIENT
  Age: 76 Year
  Sex: Male

DRUGS (2)
  1. LANTUS SOLOSTAR [Suspect]
     Active Substance: INSULIN GLARGINE
     Indication: Type 2 diabetes mellitus
     Dosage: 50 IU, QD
     Dates: start: 2012
  2. APIDRA [Concomitant]
     Active Substance: INSULIN GLULISINE

REACTIONS (7)
  - Cerebrovascular accident [Unknown]
  - Visual impairment [Unknown]
  - Aphasia [Unknown]
  - Facial paralysis [Unknown]
  - Knee arthroplasty [Unknown]
  - Blood glucose abnormal [Unknown]
  - Product dose omission issue [Unknown]

NARRATIVE: CASE EVENT DATE: 20211201
